FAERS Safety Report 20831472 (Version 1)
Quarter: 2022Q2

REPORT INFORMATION
  Report Type: Spontaneous
  Country: US (occurrence: US)
  Receive Date: 20220516
  Receipt Date: 20220516
  Transmission Date: 20220721
  Serious: Yes (Hospitalization)
  Sender: FDA-Public Use
  Company Number: US-HETERO-HET2022US01027

PATIENT
  Age: 64 Year
  Sex: Male

DRUGS (1)
  1. VALACYCLOVIR [Suspect]
     Active Substance: VALACYCLOVIR HYDROCHLORIDE
     Indication: Herpes zoster meningitis
     Dosage: 1 GRAM, T.I.D.
     Route: 048

REACTIONS (2)
  - Nephropathy toxic [Recovering/Resolving]
  - Neurotoxicity [Recovered/Resolved]
